FAERS Safety Report 11414016 (Version 2)
Quarter: 2015Q4

REPORT INFORMATION
  Report Type: Spontaneous
  Country: US (occurrence: US)
  Receive Date: 20150824
  Receipt Date: 20151016
  Transmission Date: 20160304
  Serious: No
  Sender: FDA-Public Use
  Company Number: US-ASTRAZENECA-2008UW18668

PATIENT
  Sex: Female
  Weight: 72.6 kg

DRUGS (4)
  1. PLAVIX [Concomitant]
     Active Substance: CLOPIDOGREL BISULFATE
     Indication: ARTERIAL RUPTURE
     Dates: start: 2009
  2. SYMBICORT [Suspect]
     Active Substance: BUDESONIDE\FORMOTEROL FUMARATE DIHYDRATE
     Indication: ASTHMA
     Dosage: 160/4.5 MCG, PUFFS TWICE DAILY, TWO TIMES A DAY
     Route: 055
     Dates: start: 2005
  3. SYMBICORT [Suspect]
     Active Substance: BUDESONIDE\FORMOTEROL FUMARATE DIHYDRATE
     Indication: ASTHMA
     Dosage: 80/4.5 UG 120 DOSE INHALER, UNKNOWN
     Route: 055
  4. SYMBICORT [Suspect]
     Active Substance: BUDESONIDE\FORMOTEROL FUMARATE DIHYDRATE
     Indication: ASTHMA
     Dosage: 160/4.5 MCG, PUFFS TWICE DAILY, TWO TIMES A DAY
     Route: 055
     Dates: start: 20150809

REACTIONS (6)
  - Nausea [Unknown]
  - Off label use [Unknown]
  - Product quality issue [Unknown]
  - Cough [Unknown]
  - Retching [Unknown]
  - Dysgeusia [Unknown]
